FAERS Safety Report 9791171 (Version 1)
Quarter: 2013Q4

REPORT INFORMATION
  Report Type: Spontaneous
  Country: JP (occurrence: JP)
  Receive Date: 20131231
  Receipt Date: 20131231
  Transmission Date: 20140711
  Serious: Yes (Hospitalization, Other)
  Sender: FDA-Public Use
  Company Number: PHHY2013JP151710

PATIENT
  Age: 64 Year
  Sex: Male
  Weight: 61 kg

DRUGS (19)
  1. CICLOSPORIN [Suspect]
     Indication: MYELODYSPLASTIC SYNDROME
     Dates: start: 200912
  2. CICLOSPORIN [Suspect]
     Dosage: 50 MG, PER DAY
  3. CICLOSPORIN [Suspect]
     Dosage: 30 MG, PER DAY
  4. CICLOSPORIN [Suspect]
     Dosage: 50 MG, PER DAY
     Dates: start: 201204
  5. CICLOSPORIN [Suspect]
     Dosage: 30 MG, PER DAY
  6. TACROLIMUS [Suspect]
     Indication: IMMUNOSUPPRESSION
     Dosage: 0.6 MG, PER DAY
  7. TACROLIMUS [Suspect]
     Dosage: 0.2 MG, PER DAY
     Dates: start: 201010
  8. TACROLIMUS [Suspect]
     Dosage: 0.6 MG, PER DAY
     Dates: start: 201011, end: 201204
  9. TACROLIMUS [Suspect]
     Dosage: 0.3 MG, PER DAY
     Dates: start: 201101
  10. PREDNISOLONE [Suspect]
     Indication: NEPHROTIC SYNDROME
     Dosage: 50 MG, PER DAY
     Dates: start: 201103
  11. PREDNISOLONE [Suspect]
     Dosage: 7.5 MG, PER DAY
     Dates: start: 201109
  12. PREDNISOLONE [Suspect]
     Dosage: 5 MG, PER DAY
     Dates: start: 201111
  13. PREDNISOLONE [Suspect]
     Dosage: 30 MG, PER DAY
     Dates: start: 201202
  14. PREDNISOLONE [Suspect]
     Dosage: 50 MG, PER DAY
     Dates: start: 201203
  15. PREDNISOLONE [Suspect]
     Dosage: 10 MG, PER DAY
  16. METENOLONE [Suspect]
     Indication: MYELODYSPLASTIC SYNDROME
     Dates: start: 200912
  17. ANTITHYMOCYTE IMMUNOGLOBULIN [Suspect]
     Indication: MYELODYSPLASTIC SYNDROME
     Dates: start: 200912
  18. FLUDARABINE [Concomitant]
     Dosage: 30 MG/M2, FOR 6 DAYS
  19. BUSULFAN [Concomitant]
     Dosage: 3.2 MG/KG, FOR 2 DAYS

REACTIONS (9)
  - Nephrotic syndrome [Recovered/Resolved]
  - Proteinuria [Recovered/Resolved]
  - Oedema peripheral [Unknown]
  - Graft versus host disease [Unknown]
  - Rash [Unknown]
  - Pleural effusion [Unknown]
  - Renal injury [Unknown]
  - Hepatic function abnormal [Unknown]
  - Drug ineffective [Unknown]
